FAERS Safety Report 8333813-4 (Version None)
Quarter: 2012Q2

REPORT INFORMATION
  Report Type: 
  Country: None (occurrence: None)
  Receive Date: 20120503
  Receipt Date: 20120427
  Transmission Date: 20120825
  Serious: Yes (Hospitalization)
  Sender: FDA-Public Use
  Company Number: US-PFIZER INC-2012034859

PATIENT
  Sex: Male
  Weight: 83.77 kg

DRUGS (13)
  1. CARBOPLATIN [Suspect]
     Indication: METASTATIC MALIGNANT MELANOMA
     Dosage: 580 MG, UNK
     Route: 042
     Dates: end: 20120125
  2. LISINOPRIL [Concomitant]
     Dosage: 40 MG, DAILY
     Route: 048
  3. ACETYLSALICYLIC ACID [Concomitant]
     Dosage: 325 MG, DAILY
     Route: 048
  4. MIRALAX [Concomitant]
     Dosage: 1 TSP, PRN
     Route: 048
  5. NIASPAN [Concomitant]
     Dosage: 50 MG, 1X/DAY
     Route: 048
  6. METFORMIN [Concomitant]
     Dosage: 850 MG, 2X/DAY
     Route: 048
  7. PACLITAXEL [Suspect]
     Indication: METASTATIC MALIGNANT MELANOMA
     Dosage: 360 MG, UNK
     Route: 042
     Dates: end: 20120125
  8. HYDROCHLOROTHIAZIDE [Concomitant]
     Dosage: 25 MG, 1X/DAY
     Route: 048
  9. POTASSIUM CHLORIDE [Concomitant]
     Dosage: 20 MG, DAILY
     Route: 048
  10. AXITINIB [Suspect]
     Indication: METASTATIC MALIGNANT MELANOMA
     Dosage: 5 MG, 2X/DAY, 2 WEEKS ON 1 WEEK OFF
     Route: 048
     Dates: start: 20110926, end: 20120202
  11. METOPROLOL [Concomitant]
     Dosage: 100 MG, 2X/DAY
     Route: 048
  12. AMLODIPINE [Concomitant]
     Dosage: 10 MG, DAILY
     Route: 048
  13. GLIPIZIDE [Concomitant]
     Dosage: 10 MG, 2X/DAY
     Route: 048

REACTIONS (2)
  - ATAXIA [None]
  - DYSPNOEA [None]
